FAERS Safety Report 4827034-7 (Version None)
Quarter: 2005Q4

REPORT INFORMATION
  Report Type: 
  Country: None (occurrence: None)
  Receive Date: 20051014
  Receipt Date: 20050622
  Transmission Date: 20060501
  Serious: No
  Sender: FDA-Public Use
  Company Number: 2005SP000657

PATIENT
  Age: 67 Year
  Sex: Female
  Weight: 77.1115 kg

DRUGS (3)
  1. LUNESTA [Suspect]
     Dosage: 3 MG; HS; ORAL; 3 MG; X1; ORAL
     Route: 048
     Dates: start: 20050508, end: 20050508
  2. LUNESTA [Suspect]
     Dosage: 3 MG; HS; ORAL; 3 MG; X1; ORAL
     Route: 048
     Dates: start: 20050508
  3. AMBIEN [Concomitant]

REACTIONS (3)
  - DRUG INEFFECTIVE [None]
  - DYSGEUSIA [None]
  - INITIAL INSOMNIA [None]
